FAERS Safety Report 6900521-3 (Version None)
Quarter: 2010Q3

REPORT INFORMATION
  Report Type: 
  Country: None (occurrence: None)
  Receive Date: 20100803
  Receipt Date: 20100728
  Transmission Date: 20110219
  Serious: Yes (Other)
  Sender: FDA-Public Use
  Company Number: FR-WYE-G06433910

PATIENT
  Sex: Male

DRUGS (4)
  1. PIPERACILLIN AND TAZOBACTAM [Suspect]
     Indication: PERITONITIS
     Dosage: UNKNOWN
     Route: 042
     Dates: start: 20100217, end: 20100217
  2. PIPERACILLIN AND TAZOBACTAM [Suspect]
     Indication: APPENDICITIS
     Dosage: UNKNOWN
     Route: 042
     Dates: start: 20100217, end: 20100217
  3. AUGMENTIN '125' [Concomitant]
     Indication: PERITONITIS
     Dosage: UNKNOWN
     Dates: start: 20100217, end: 20100217
  4. AUGMENTIN '125' [Concomitant]
     Indication: APPENDICITIS
     Dosage: UNKNOWN
     Dates: start: 20100217

REACTIONS (4)
  - ANAPHYLACTOID REACTION [None]
  - ASTHMA [None]
  - CONJUNCTIVITIS [None]
  - TONGUE OEDEMA [None]
